FAERS Safety Report 14325269 (Version 1)
Quarter: 2017Q4

REPORT INFORMATION
  Report Type: Spontaneous
  Country: US (occurrence: US)
  Receive Date: 20171224
  Receipt Date: 20171224
  Transmission Date: 20180321
  Serious: Yes (Disabling, Other)
  Sender: FDA-Public Use
  Company Number: None

PATIENT
  Age: 40 Year
  Sex: Female
  Weight: 61.23 kg

DRUGS (2)
  1. OMEGA 3S [Concomitant]
  2. MIRENA [Suspect]
     Active Substance: LEVONORGESTREL
     Dates: start: 20150101, end: 20170725

REACTIONS (5)
  - Job dissatisfaction [None]
  - Vertigo [None]
  - Sleep disorder [None]
  - Migraine [None]
  - Blood glucose abnormal [None]

NARRATIVE: CASE EVENT DATE: 20170711
